FAERS Safety Report 4749751-X (Version None)
Quarter: 2005Q3

REPORT INFORMATION
  Report Type: 
  Country: None (occurrence: None)
  Receive Date: 20050822
  Receipt Date: 20050712
  Transmission Date: 20060218
  Serious: Yes (Hospitalization)
  Sender: FDA-Public Use
  Company Number: PHHO2005JP11182

PATIENT
  Age: 41 Year
  Sex: Female

DRUGS (1)
  1. DIOVAN [Suspect]
     Indication: HYPERTENSION
     Dosage: 80 MG, QD
     Route: 048
     Dates: start: 20030206, end: 20050101

REACTIONS (4)
  - BLOOD PRESSURE DECREASED [None]
  - CERVIX CARCINOMA [None]
  - SURGERY [None]
  - VAGINAL HAEMORRHAGE [None]
